FAERS Safety Report 11615382 (Version 1)
Quarter: 2015Q4

REPORT INFORMATION
  Report Type: Spontaneous
  Country: US (occurrence: None)
  Receive Date: 20151008
  Receipt Date: 20151008
  Transmission Date: 20160304
  Serious: Yes (Other)
  Sender: FDA-Public Use
  Company Number: None

PATIENT
  Age: 93 Year
  Sex: Male

DRUGS (1)
  1. ZYTIGA [Suspect]
     Active Substance: ABIRATERONE ACETATE
     Indication: PROSTATE CANCER
     Dosage: 4 TAB QD PO
     Route: 048
     Dates: start: 20150423, end: 20150930

REACTIONS (2)
  - Hot flush [None]
  - Constipation [None]

NARRATIVE: CASE EVENT DATE: 20150930
